FAERS Safety Report 4694295-7 (Version None)
Quarter: 2005Q2

REPORT INFORMATION
  Report Type: 
  Country: None (occurrence: None)
  Receive Date: 20050620
  Receipt Date: 20050610
  Transmission Date: 20051028
  Serious: Yes (Hospitalization)
  Sender: FDA-Public Use
  Company Number: JP-ABBOTT-05P-087-0303134-00

PATIENT
  Age: 7 Month
  Sex: Female
  Weight: 6.67 kg

DRUGS (6)
  1. CLARITH SYRUP [Suspect]
     Indication: PNEUMONIA
     Route: 048
     Dates: start: 20050207, end: 20050214
  2. THEOPHYLLINE [Concomitant]
     Indication: PNEUMONIA
     Route: 048
     Dates: start: 20050207, end: 20050214
  3. OXATOMIDE [Concomitant]
     Indication: PNEUMONIA
     Route: 048
     Dates: start: 20050207, end: 20050214
  4. AMBROXOL HYDROCHLORIDE [Concomitant]
     Indication: PNEUMONIA
     Route: 048
     Dates: start: 20050207, end: 20050214
  5. CARBOCISTEINE LYSINE [Concomitant]
     Indication: PNEUMONIA
     Route: 048
     Dates: start: 20050207
  6. PROCATEROL HCL [Concomitant]
     Indication: PNEUMONIA
     Route: 048
     Dates: start: 20050207, end: 20050214

REACTIONS (9)
  - C-REACTIVE PROTEIN INCREASED [None]
  - FOOD ALLERGY [None]
  - HAEMOGLOBIN DECREASED [None]
  - MILK ALLERGY [None]
  - PLATELET COUNT DECREASED [None]
  - POOR SUCKING REFLEX [None]
  - PYREXIA [None]
  - RASH ERYTHEMATOUS [None]
  - WHITE BLOOD CELL COUNT INCREASED [None]
